FAERS Safety Report 4890760-8 (Version None)
Quarter: 2006Q1

REPORT INFORMATION
  Report Type: 
  Country: None (occurrence: None)
  Receive Date: 20060123
  Receipt Date: 20060110
  Transmission Date: 20060701
  Serious: Yes (Other)
  Sender: FDA-Public Use
  Company Number: 2006BH000563

PATIENT
  Age: 54 Day
  Sex: Female

DRUGS (2)
  1. VANCOMYCIN HCL [Suspect]
     Indication: SEPSIS
     Dosage: SEE IMAGE, IV
     Route: 042
  2. GENTAMICIN [Concomitant]

REACTIONS (4)
  - ACCIDENTAL OVERDOSE [None]
  - BLISTER [None]
  - BLOOD UREA INCREASED [None]
  - RASH ERYTHEMATOUS [None]
